FAERS Safety Report 8604701-0 (Version None)
Quarter: 2012Q3

REPORT INFORMATION
  Report Type: 
  Country: None (occurrence: None)
  Receive Date: 20120820
  Receipt Date: 20120816
  Transmission Date: 20120928
  Serious: Yes (Hospitalization, Other)
  Sender: FDA-Public Use
  Company Number: PHHY2012CO054754

PATIENT
  Sex: Female

DRUGS (2)
  1. ZOLEDRONOC ACID [Suspect]
     Indication: OSTEOPOROSIS
     Dosage: 5 MG ANNUALLY
     Route: 042
     Dates: start: 20100129, end: 20100901
  2. ALENDRONATE SODIUM [Concomitant]

REACTIONS (4)
  - SPINAL FRACTURE [None]
  - TOOTHACHE [None]
  - JAW DISORDER [None]
  - FACE INJURY [None]
